FAERS Safety Report 4512992-0 (Version None)
Quarter: 2004Q4

REPORT INFORMATION
  Report Type: 
  Country: None (occurrence: None)
  Receive Date: 20041124
  Receipt Date: 20041111
  Transmission Date: 20050328
  Serious: Yes (Other)
  Sender: FDA-Public Use
  Company Number: 235565K04USA

PATIENT
  Age: 41 Year
  Sex: Female

DRUGS (6)
  1. REBIF [Suspect]
     Indication: MULTIPLE SCLEROSIS
     Dosage: 22 MCG, 3 IN 1 WEEKS, SUBCUTANEOUS
     Route: 058
     Dates: start: 20040723
  2. TYLENOL [Concomitant]
  3. SOLU-MEDROL [Concomitant]
  4. DILANTIN [Concomitant]
  5. LORAZEPAM [Concomitant]
  6. TYLENOL WITH CODEINE (PANADEINE CO) [Concomitant]

REACTIONS (5)
  - CONVULSION [None]
  - FALL [None]
  - LOSS OF CONSCIOUSNESS [None]
  - PAIN [None]
  - RELAPSING-REMITTING MULTIPLE SCLEROSIS [None]
